FAERS Safety Report 13840903 (Version 1)
Quarter: 2017Q3

REPORT INFORMATION
  Report Type: Spontaneous
  Country: CN (occurrence: CN)
  Receive Date: 20170807
  Receipt Date: 20170807
  Transmission Date: 20171127
  Serious: Yes (Other)
  Sender: FDA-Public Use
  Company Number: CN-ELI_LILLY_AND_COMPANY-CN201707011683

PATIENT
  Age: 49 Year
  Sex: Male
  Weight: 69 kg

DRUGS (5)
  1. INSULIN GLARGINE [Concomitant]
     Active Substance: INSULIN GLARGINE
     Indication: PRODUCT USED FOR UNKNOWN INDICATION
     Dosage: UNK
     Dates: start: 2011, end: 2013
  2. HUMALOG [Suspect]
     Active Substance: INSULIN LISPRO
     Dosage: 10 U, EACH EVENING
     Route: 058
  3. HUMALOG MIX75/25 [Suspect]
     Active Substance: INSULIN LISPRO
     Indication: DIABETES MELLITUS
     Dosage: 16 U, BID
     Route: 058
     Dates: start: 2014
  4. HUMALOG [Suspect]
     Active Substance: INSULIN LISPRO
     Indication: DIABETES MELLITUS
     Dosage: 12 U, EACH MORNING
     Route: 058
     Dates: start: 2005, end: 2013
  5. HUMALOG MIX75/25 [Suspect]
     Active Substance: INSULIN LISPRO
     Dosage: 16 U, BID
     Route: 058

REACTIONS (4)
  - Diarrhoea [Unknown]
  - Weight decreased [Unknown]
  - Blindness [Unknown]
  - Chills [Unknown]

NARRATIVE: CASE EVENT DATE: 2005
